FAERS Safety Report 8856108 (Version 1)
Quarter: 2012Q4

REPORT INFORMATION
  Report Type: Spontaneous
  Country: US (occurrence: None)
  Receive Date: 20121023
  Receipt Date: 20121023
  Transmission Date: 20130627
  Serious: No
  Sender: FDA-Public Use
  Company Number: None

PATIENT
  Sex: Female
  Weight: 84.37 kg

DRUGS (2)
  1. FEMARA [Suspect]
     Route: 048
     Dates: start: 2010, end: 2012
  2. LETROZOLE [Suspect]

REACTIONS (5)
  - Lupus-like syndrome [None]
  - Weight decreased [None]
  - Dysgeusia [None]
  - Hyperhidrosis [None]
  - Abdominal distension [None]
